FAERS Safety Report 24352337 (Version 1)
Quarter: 2024Q3

REPORT INFORMATION
  Report Type: Spontaneous
  Country: US (occurrence: None)
  Receive Date: 20240921
  Receipt Date: 20240921
  Transmission Date: 20241016
  Serious: Yes (Hospitalization)
  Sender: Public
  Company Number: None

PATIENT
  Age: 80 Year
  Sex: Female

DRUGS (2)
  1. CLOPIDOGREL [Suspect]
     Active Substance: CLOPIDOGREL BISULFATE
     Indication: Cerebral infarction
     Dosage: 75 MG DAILY ORAL
     Route: 048
     Dates: start: 20240725
  2. OMEPRAZOLE [Suspect]
     Active Substance: OMEPRAZOLE
     Indication: Gastrooesophageal reflux disease
     Dosage: 20 MG DAILY ORAL
     Route: 048
     Dates: start: 20170518, end: 20240920

REACTIONS (2)
  - Drug interaction [None]
  - Cerebrovascular accident [None]

NARRATIVE: CASE EVENT DATE: 20240920
